FAERS Safety Report 25314619 (Version 1)
Quarter: 2025Q2

REPORT INFORMATION
  Report Type: Spontaneous
  Country: JP (occurrence: JP)
  Receive Date: 20250514
  Receipt Date: 20250514
  Transmission Date: 20250717
  Serious: Yes (Hospitalization, Disabling, Other)
  Sender: NOVO NORDISK
  Company Number: JP-NOVOPROD-1413780

PATIENT
  Age: 48 Year
  Sex: Male

DRUGS (1)
  1. NOVORAPID [Suspect]
     Active Substance: INSULIN ASPART
     Indication: Type 2 diabetes mellitus
     Route: 058

REACTIONS (2)
  - Hypoglycaemic encephalopathy [Recovered/Resolved with Sequelae]
  - Paroxysmal sympathetic hyperactivity [Recovering/Resolving]
